FAERS Safety Report 5206665-9 (Version None)
Quarter: 2007Q1

REPORT INFORMATION
  Report Type: 
  Country: None (occurrence: None)
  Receive Date: 20070109
  Receipt Date: 20061228
  Transmission Date: 20070707
  Serious: Yes (Other)
  Sender: FDA-Public Use
  Company Number: 234375

PATIENT
  Age: 68 Year
  Sex: Male
  Weight: 69 kg

DRUGS (9)
  1. RITUXIMAB(RITUXIMAB) CONC FOR SOLUTION FOR INFUSION [Suspect]
     Indication: NON-HODGKIN'S LYMPHOMA
     Dosage: 375 MG, QD, INTRAVENOUS
     Route: 042
     Dates: start: 20061006, end: 20061106
  2. LASIX [Concomitant]
  3. ALDACTONE [Concomitant]
  4. URSO (URSODEOXYCHOLIC ACID) [Concomitant]
  5. OCTOTIAMINE (OCTOTIAMINE) [Concomitant]
  6. ASPARA (MAGNESIUM NOS, POTASSIUM ASPARTATE) [Concomitant]
  7. CHINESE MEDICINE (CHINESE TRADITIONAL MEDICINE) [Concomitant]
  8. MOSAPRIDE CITRATE (MOSAPRIDE CITRATE) [Concomitant]
  9. DEXTROMETHORPHAN HYDROBROMIDE [Concomitant]

REACTIONS (5)
  - ANAEMIA [None]
  - GASTROINTESTINAL HAEMORRHAGE [None]
  - HEPATIC FAILURE [None]
  - TUMOUR HAEMORRHAGE [None]
  - TUMOUR LYSIS SYNDROME [None]
